FAERS Safety Report 4698172-7 (Version None)
Quarter: 2005Q2

REPORT INFORMATION
  Report Type: 
  Country: None (occurrence: None)
  Receive Date: 20050623
  Receipt Date: 20050615
  Transmission Date: 20051028
  Serious: Yes (Other)
  Sender: FDA-Public Use
  Company Number: GB-GLAXOSMITHKLINE-B0384599A

PATIENT
  Age: 82 Year
  Sex: Male
  Weight: 89 kg

DRUGS (2)
  1. CEFUROXIME SODIUM [Suspect]
     Indication: HERNIA REPAIR
     Route: 042
     Dates: start: 20050601, end: 20050601
  2. MULTIPLE MEDICATION [Concomitant]

REACTIONS (1)
  - HYPOTENSION [None]
